FAERS Safety Report 10175122 (Version 1)
Quarter: 2014Q2

REPORT INFORMATION
  Report Type: Report from Study
  Country: BR (occurrence: BR)
  Receive Date: 20140515
  Receipt Date: 20140515
  Transmission Date: 20141212
  Serious: Yes (Other)
  Sender: FDA-Public Use
  Company Number: PHHY2014BR058554

PATIENT
  Sex: Male
  Weight: 76.9 kg

DRUGS (7)
  1. EXELON PATCH [Suspect]
     Indication: DEMENTIA
     Dosage: 1 DF, EVERY 24 HOURS
     Route: 062
     Dates: start: 20140424, end: 20140430
  2. EXELON PATCH [Suspect]
     Dosage: 18 MG/10 CM2 (DAILY DOSE: 9.5 MG/24 HOURS)
     Route: 062
     Dates: start: 20140501
  3. ANCORON [Concomitant]
     Indication: CARDIAC DISORDER
     Dosage: UNK UKN, UNK
  4. CORUS//LOSARTAN POTASSIUM [Concomitant]
     Indication: CARDIAC DISORDER
     Dosage: UNK UKN, UNK
  5. XALATAN [Concomitant]
     Indication: CARDIAC DISORDER
     Dosage: UNK UKN, UNK
  6. RIVOTRIL [Concomitant]
     Indication: MENTAL DISORDER
     Dosage: UNK UKN, UNK
  7. RISPERIDONE [Concomitant]
     Indication: MENTAL DISORDER
     Dosage: UNK UKN, UNK

REACTIONS (2)
  - Erysipelas [Unknown]
  - Weight decreased [Unknown]
